FAERS Safety Report 17217775 (Version 2)
Quarter: 2021Q1

REPORT INFORMATION
  Report Type: Spontaneous
  Country: US (occurrence: US)
  Receive Date: 20191231
  Receipt Date: 20210302
  Transmission Date: 20210419
  Serious: Yes (Death, Hospitalization)
  Sender: FDA-Public Use
  Company Number: US-TEVA-2019-US-1161985

PATIENT
  Age: 83 Year
  Sex: Female
  Weight: 90.8 kg

DRUGS (11)
  1. LASIX [Concomitant]
     Active Substance: FUROSEMIDE
     Route: 048
     Dates: start: 20150204, end: 20171019
  2. AMLODIPINE BESILATE [Concomitant]
     Active Substance: AMLODIPINE BESYLATE
     Route: 048
     Dates: start: 20150204, end: 20171019
  3. VALSARTAN/ HYDROCHLOROTHIAZIDE ACETERIS [Suspect]
     Active Substance: HYDROCHLOROTHIAZIDE\VALSARTAN
     Dosage: 160?12.5 MG PER TABLET
     Route: 048
     Dates: start: 20150505, end: 20151017
  4. LASIX [Concomitant]
     Active Substance: FUROSEMIDE
     Indication: HYPERTENSION
     Route: 048
     Dates: start: 20150204, end: 20171019
  5. AMLODIPINE BESILATE [Concomitant]
     Active Substance: AMLODIPINE BESYLATE
     Route: 048
     Dates: start: 20150204, end: 20171019
  6. AMLODIPINE BESILATE [Concomitant]
     Active Substance: AMLODIPINE BESYLATE
     Dosage: 4 CAPSULES 1 HOUR PRIOR TO DENTAL APPOINTMENT
     Route: 065
     Dates: start: 20150204, end: 20171019
  7. AMLODIPINE BESILATE [Concomitant]
     Active Substance: AMLODIPINE BESYLATE
     Indication: HYPERTENSION
     Route: 048
     Dates: start: 20150204, end: 20171019
  8. AMLODIPINE BESILATE [Concomitant]
     Active Substance: AMLODIPINE BESYLATE
     Route: 048
     Dates: start: 20150204, end: 20171019
  9. AMLODIPINE BESILATE [Concomitant]
     Active Substance: AMLODIPINE BESYLATE
     Dosage: 4 CAPSULES 1 HOUR PRIOR TO DENTAL APPOINTMENT
     Route: 065
     Dates: start: 20150204, end: 20171019
  10. LASIX [Concomitant]
     Active Substance: FUROSEMIDE
     Indication: FLUID RETENTION
     Route: 048
     Dates: start: 20150204, end: 20171019
  11. VALSARTAN/ HYDROCHLOROTHIAZIDE ACETERIS [Suspect]
     Active Substance: HYDROCHLOROTHIAZIDE\VALSARTAN
     Indication: HYPERTENSION
     Dosage: 160?12.5 MG PER TABLET
     Route: 048
     Dates: start: 20150505, end: 20151017

REACTIONS (6)
  - Colon cancer metastatic [Fatal]
  - Metastasis [Fatal]
  - Lung neoplasm malignant [Fatal]
  - Pancreatic carcinoma [Fatal]
  - Hepatic cancer [Fatal]
  - Gastric cancer [Fatal]
